FAERS Safety Report 4515585-4 (Version None)
Quarter: 2004Q4

REPORT INFORMATION
  Report Type: 
  Country: None (occurrence: None)
  Receive Date: 20041126
  Receipt Date: 20041119
  Transmission Date: 20050328
  Serious: Yes (Hospitalization)
  Sender: FDA-Public Use
  Company Number: 2004095018

PATIENT
  Sex: Male

DRUGS (1)
  1. NIFEDIPINE [Suspect]
     Indication: HYPERTENSIVE CRISIS
     Dosage: 20 MG (10 MG, 2 IN 1 D), ORAL
     Route: 048

REACTIONS (3)
  - CARDIOMEGALY [None]
  - HYPERTENSION [None]
  - SINUS TACHYCARDIA [None]
